FAERS Safety Report 14659275 (Version 1)
Quarter: 2018Q1

REPORT INFORMATION
  Report Type: Spontaneous
  Country: US (occurrence: US)
  Receive Date: 20180317
  Receipt Date: 20180317
  Transmission Date: 20180509
  Serious: Yes (Other)
  Sender: FDA-Public Use
  Company Number: None

PATIENT
  Age: 29 Year
  Sex: Female
  Weight: 74.84 kg

DRUGS (2)
  1. BUPRENNORPHINE HYDROCHLORIDE-NALOXONE HYDROCHLORIDE [Suspect]
     Active Substance: BUPRENORPHINE HYDROCHLORIDE\NALOXONE HYDROCHLORIDE
  2. ADULT AND CHILD THERAPY [Concomitant]

REACTIONS (3)
  - Malabsorption [None]
  - Aptyalism [None]
  - Drug level changed [None]

NARRATIVE: CASE EVENT DATE: 20180228
